FAERS Safety Report 4932787-3 (Version None)
Quarter: 2006Q1

REPORT INFORMATION
  Report Type: 
  Country: None (occurrence: None)
  Receive Date: 20060301
  Receipt Date: 20060301
  Transmission Date: 20060701
  Serious: Yes (Hospitalization)
  Sender: FDA-Public Use
  Company Number: None

PATIENT

DRUGS (1)
  1. LYRICA [Suspect]
     Dosage: 75MG, 1BID, PO
     Route: 048
     Dates: start: 20060215, end: 20060220

REACTIONS (8)
  - ABNORMAL BEHAVIOUR [None]
  - BALANCE DISORDER [None]
  - DISORDER OF ORBIT [None]
  - DISORIENTATION [None]
  - EXCORIATION [None]
  - FALL [None]
  - LETHARGY [None]
  - SOMNOLENCE [None]
